FAERS Safety Report 12883292 (Version 1)
Quarter: 2016Q4

REPORT INFORMATION
  Report Type: Spontaneous
  Country: AR (occurrence: AR)
  Receive Date: 20161025
  Receipt Date: 20161025
  Transmission Date: 20170207
  Serious: Yes (Other)
  Sender: FDA-Public Use
  Company Number: AR-SA-2016SA194371

PATIENT
  Age: 57 Year
  Sex: Male
  Weight: 96 kg

DRUGS (1)
  1. VANDETANIB. [Suspect]
     Active Substance: VANDETANIB
     Indication: METASTASES TO LUNG
     Route: 048
     Dates: start: 201504

REACTIONS (2)
  - Rash [Unknown]
  - Skin cancer [Unknown]

NARRATIVE: CASE EVENT DATE: 201608
